FAERS Safety Report 7487044 (Version 3)
Quarter: 2013Q1

REPORT INFORMATION
  Report Type: Spontaneous
  Country: DE (occurrence: DE)
  Receive Date: 20100719
  Receipt Date: 20130205
  Transmission Date: 20140127
  Serious: Yes (Other)
  Sender: FDA-Public Use
  Company Number: PHHY2010DE45061

PATIENT
  Sex: Female

DRUGS (2)
  1. EXTAVIA [Suspect]
     Indication: MULTIPLE SCLEROSIS
     Dosage: 250 UG, QOD
     Route: 058
     Dates: start: 200904
  2. EXTAVIA [Suspect]
     Dosage: 1 ML, ONCE EVERY THIRD DAY
     Route: 058
     Dates: start: 20121121

REACTIONS (8)
  - Skin necrosis [Recovered/Resolved]
  - Skin reaction [Recovered/Resolved]
  - Induration [Recovered/Resolved]
  - Dermatitis [Recovered/Resolved]
  - Pain [Recovered/Resolved]
  - Injection site pain [Recovered/Resolved]
  - Injection site discolouration [Recovered/Resolved]
  - Injection site reaction [Recovered/Resolved]
